FAERS Safety Report 8001275-2 (Version None)
Quarter: 2011Q4

REPORT INFORMATION
  Report Type: 
  Country: None (occurrence: None)
  Receive Date: 20111222
  Receipt Date: 20111216
  Transmission Date: 20120403
  Serious: No
  Sender: FDA-Public Use
  Company Number: US-SANOFI-AVENTIS-2011SA001941

PATIENT
  Age: 64 Year
  Sex: Female

DRUGS (24)
  1. CALCIUM CITRATE/VITAMIN D NOS [Concomitant]
  2. COREG [Concomitant]
  3. VITAMIN D [Concomitant]
  4. ROSUVASTATIN CALCIUM [Concomitant]
  5. MULTI-VITAMINS [Concomitant]
  6. ANTIHYPERTENSIVES [Concomitant]
     Dosage: DOSE MENTIONED AS 300/12.5 MG
  7. FLUTICASONE FUROATE [Concomitant]
  8. ALLEGRA [Concomitant]
  9. ASTELIN [Concomitant]
  10. CELEBREX [Concomitant]
  11. SINGULAIR [Concomitant]
  12. MULTAQ [Suspect]
     Indication: ATRIAL FLUTTER
     Dosage: PRODUCT START DATE MENTIONED AS ON FRIDAY
     Route: 048
     Dates: start: 20110107, end: 20110301
  13. MULTAQ [Suspect]
     Route: 048
     Dates: start: 20110401
  14. ALL OTHER THERAPEUTIC PRODUCTS [Concomitant]
  15. POTASSIUM CHLORIDE [Concomitant]
  16. PREVACID [Concomitant]
  17. ZOLEDRONIC ACID [Concomitant]
  18. FLECAINIDE ACETATE [Concomitant]
     Dates: start: 20110301, end: 20110401
  19. XOPENEX [Concomitant]
  20. FISH OIL [Concomitant]
  21. DABIGATRAN ETEXILATE [Concomitant]
  22. TRAMADOL HCL [Concomitant]
  23. SPIRONOLACTONE [Concomitant]
  24. PULMICORT [Concomitant]

REACTIONS (9)
  - ANOSMIA [None]
  - COUGH [None]
  - FEELING ABNORMAL [None]
  - BLOOD CREATININE INCREASED [None]
  - WEIGHT INCREASED [None]
  - AGEUSIA [None]
  - FEELING JITTERY [None]
  - HEART RATE ABNORMAL [None]
  - JOINT SWELLING [None]
